FAERS Safety Report 7646613 (Version 5)
Quarter: 2013Q2

REPORT INFORMATION
  Report Type: Spontaneous
  Country: US (occurrence: US)
  Receive Date: 20101029
  Receipt Date: 20130610
  Transmission Date: 20140414
  Serious: Yes (Hospitalization)
  Sender: FDA-Public Use
  Company Number: US-B.I. PHARMACEUTICALS,INC./RIDGEFIELD-2010-BP-11859BP

PATIENT
  Sex: Male
  Weight: 70.3 kg

DRUGS (3)
  1. SPIRIVA HANDIHALER [Suspect]
     Indication: CHRONIC OBSTRUCTIVE PULMONARY DISEASE
     Dosage: 18 MCG
     Route: 055
     Dates: start: 2008
  2. VENTOLIN [Concomitant]
  3. LASIX [Concomitant]
     Indication: ATRIAL FIBRILLATION
     Dosage: 40 MG
     Route: 048
     Dates: start: 2012

REACTIONS (7)
  - Acute myocardial infarction [Unknown]
  - Arteriosclerosis [Recovered/Resolved]
  - Chest pain [Recovered/Resolved]
  - Dyspnoea exertional [Not Recovered/Not Resolved]
  - Dry mouth [Not Recovered/Not Resolved]
  - Product quality issue [Unknown]
  - Product quality issue [Unknown]
